FAERS Safety Report 11512666 (Version 1)
Quarter: 2015Q3

REPORT INFORMATION
  Report Type: Spontaneous
  Country: US (occurrence: None)
  Receive Date: 20150915
  Receipt Date: 20150915
  Transmission Date: 20151125
  Serious: No
  Sender: FDA-Public Use
  Company Number: None

PATIENT
  Age: 57 Year

DRUGS (7)
  1. VITAMIN C [Concomitant]
     Active Substance: ASCORBIC ACID
  2. ENJUVIA [Concomitant]
     Active Substance: ESTROGENS, CONJUGATED SYNTHETIC B
  3. FLAGYL [Suspect]
     Active Substance: METRONIDAZOLE\METRONIDAZOLE HYDROCHLORIDE
     Indication: ABDOMINAL PAIN UPPER
     Route: 048
  4. SYNTHROID [Concomitant]
     Active Substance: LEVOTHYROXINE SODIUM
  5. VITAMIN C [Concomitant]
     Active Substance: ASCORBIC ACID
  6. FLAGYL [Suspect]
     Active Substance: METRONIDAZOLE\METRONIDAZOLE HYDROCHLORIDE
     Indication: ABDOMINAL DISTENSION
     Route: 048
  7. PEPCID [Concomitant]
     Active Substance: FAMOTIDINE

REACTIONS (5)
  - Neuropathy peripheral [None]
  - Pruritus [None]
  - Therapy cessation [None]
  - Cellulitis [None]
  - Urticaria [None]

NARRATIVE: CASE EVENT DATE: 20150820
